FAERS Safety Report 5236111-0 (Version None)
Quarter: 2007Q1

REPORT INFORMATION
  Report Type: 
  Country: None (occurrence: None)
  Receive Date: 20070212
  Receipt Date: 20070131
  Transmission Date: 20070707
  Serious: Yes (Other)
  Sender: FDA-Public Use
  Company Number: FR-JNJFOC-20070200573

PATIENT
  Age: 75 Year
  Sex: Male

DRUGS (1)
  1. INFLIXIMAB [Suspect]
     Indication: ANKYLOSING SPONDYLITIS
     Dosage: RECEIVED 17 CONSECUTIVE INFUSIONS
     Route: 042

REACTIONS (1)
  - MYCOSIS FUNGOIDES [None]
